FAERS Safety Report 9289878 (Version 1)
Quarter: 2013Q2

REPORT INFORMATION
  Report Type: Report from Study
  Country: BR (occurrence: BR)
  Receive Date: 20130515
  Receipt Date: 20130515
  Transmission Date: 20140414
  Serious: Yes (Other)
  Sender: FDA-Public Use
  Company Number: PHHY2013BR047710

PATIENT
  Age: 10 Year
  Sex: Male

DRUGS (2)
  1. RITALIN [Suspect]
     Indication: DISTURBANCE IN ATTENTION
     Dosage: 3 DF, DAILY
     Route: 048
     Dates: start: 2002
  2. RITALIN [Suspect]
     Dosage: 1 DF, DAILY

REACTIONS (5)
  - Autism [Recovering/Resolving]
  - Dysphagia [Recovered/Resolved]
  - Wrong technique in drug usage process [Unknown]
  - Agitation [Not Recovered/Not Resolved]
  - Poor quality sleep [Recovered/Resolved]
